FAERS Safety Report 7466997-0 (Version None)
Quarter: 2011Q2

REPORT INFORMATION
  Report Type: 
  Country: None (occurrence: None)
  Receive Date: 20110428
  Receipt Date: 20110406
  Transmission Date: 20111010
  Serious: Yes (Death)
  Sender: FDA-Public Use
  Company Number: 007214

PATIENT
  Age: 93 Year
  Sex: Female

DRUGS (2)
  1. PRORNER (BERAPROST SODIUM) TABLET [Concomitant]
  2. PLETAL [Suspect]
     Dosage: 50 MG, TID, ORAL
     Route: 048
     Dates: start: 20081027, end: 20090130

REACTIONS (1)
  - PNEUMONIA [None]
